FAERS Safety Report 14866697 (Version 1)
Quarter: 2018Q2

REPORT INFORMATION
  Report Type: Report from Study
  Country: US (occurrence: US)
  Receive Date: 20180508
  Receipt Date: 20180508
  Transmission Date: 20180711
  Serious: Yes (Hospitalization)
  Sender: FDA-Public Use
  Company Number: US-ALKERMES INC.-ALK-2017-005355

PATIENT
  Age: 31 Year
  Sex: Male

DRUGS (2)
  1. SULFACETAMIDE/PREDNISOLONE OPHTHALMIC [Concomitant]
     Indication: PRODUCT USED FOR UNKNOWN INDICATION
  2. VIVITROL [Suspect]
     Active Substance: NALTREXONE
     Indication: DRUG DEPENDENCE
     Dosage: 380 MG, QMO
     Route: 030
     Dates: start: 20170720

REACTIONS (10)
  - Substance-induced psychotic disorder [Recovering/Resolving]
  - Hallucination, visual [Recovered/Resolved]
  - Suicidal ideation [Recovered/Resolved]
  - Aggression [Recovered/Resolved]
  - Substance abuse [Recovering/Resolving]
  - Persistent depressive disorder [Recovered/Resolved]
  - Road traffic accident [Recovered/Resolved]
  - Stress [Recovering/Resolving]
  - Laceration [Recovering/Resolving]
  - Post-traumatic stress disorder [Unknown]

NARRATIVE: CASE EVENT DATE: 20171126
